FAERS Safety Report 8421144-3 (Version None)
Quarter: 2012Q2

REPORT INFORMATION
  Report Type: 
  Country: None (occurrence: None)
  Receive Date: 20120608
  Receipt Date: 20120530
  Transmission Date: 20120825
  Serious: Yes (Hospitalization)
  Sender: FDA-Public Use
  Company Number: FR-JNJFOC-20120603478

PATIENT
  Sex: Male

DRUGS (4)
  1. OMEPRAZOLE [Concomitant]
     Indication: PROPHYLAXIS
     Route: 048
     Dates: start: 20120503
  2. XARELTO [Suspect]
     Indication: THROMBOSIS PROPHYLAXIS
     Route: 048
     Dates: start: 20120419, end: 20120509
  3. XARELTO [Suspect]
     Indication: HIP ARTHROPLASTY
     Route: 048
     Dates: start: 20120419, end: 20120509
  4. KETOPROFEN [Suspect]
     Indication: ARTHRALGIA
     Route: 048
     Dates: start: 20120503, end: 20120509

REACTIONS (3)
  - GASTROINTESTINAL HAEMORRHAGE [None]
  - MALAISE [None]
  - ANAEMIA [None]
